FAERS Safety Report 5374868-9 (Version None)
Quarter: 2007Q2

REPORT INFORMATION
  Report Type: 
  Country: None (occurrence: None)
  Receive Date: 20070629
  Receipt Date: 20070627
  Transmission Date: 20071010
  Serious: Yes (Life-Threatening, Hospitalization)
  Sender: FDA-Public Use
  Company Number: B0477172A

PATIENT
  Age: 65 Year
  Sex: Male
  Weight: 80 kg

DRUGS (4)
  1. KIVEXA [Suspect]
     Indication: HIV INFECTION
     Route: 048
     Dates: start: 20050916, end: 20070222
  2. KALETRA [Suspect]
     Indication: HIV INFECTION
     Dosage: 4CAP TWICE PER DAY
     Route: 048
     Dates: start: 20070123, end: 20070222
  3. TELZIR [Concomitant]
  4. NORVIR [Concomitant]

REACTIONS (1)
  - RHABDOMYOLYSIS [None]
